FAERS Safety Report 5126653-0 (Version None)
Quarter: 2006Q4

REPORT INFORMATION
  Report Type: 
  Country: None (occurrence: None)
  Receive Date: 20061010
  Receipt Date: 20060927
  Transmission Date: 20070319
  Serious: Yes (Other)
  Sender: FDA-Public Use
  Company Number: 2006121160

PATIENT
  Sex: Female

DRUGS (1)
  1. FELDENE [Suspect]
     Indication: JOINT DISLOCATION
     Dosage: (20 MG), ORAL
     Route: 048
     Dates: start: 20060924

REACTIONS (4)
  - BREATH ODOUR [None]
  - BURNING SENSATION [None]
  - MOUTH ULCERATION [None]
  - ORAL DISCOMFORT [None]
